FAERS Safety Report 9308966 (Version 1)
Quarter: 2013Q2

REPORT INFORMATION
  Report Type: Spontaneous
  Country: US (occurrence: US)
  Receive Date: 20130524
  Receipt Date: 20130524
  Transmission Date: 20140414
  Serious: Yes (Other)
  Sender: FDA-Public Use
  Company Number: US-009507513-1305USA011664

PATIENT
  Age: 50 Year
  Sex: Male

DRUGS (2)
  1. ISENTRESS [Suspect]
     Dosage: UNK
     Route: 048
     Dates: end: 2013
  2. TESAMORELIN [Suspect]
     Indication: LIPODYSTROPHY ACQUIRED
     Dosage: 20 MG, QD
     Dates: start: 20130225, end: 20130311

REACTIONS (2)
  - Suicidal ideation [Recovered/Resolved]
  - Depression [Recovered/Resolved]
